FAERS Safety Report 6707576-X (Version None)
Quarter: 2010Q2

REPORT INFORMATION
  Report Type: 
  Country: None (occurrence: None)
  Receive Date: 20100503
  Receipt Date: 20100419
  Transmission Date: 20101027
  Serious: Yes (Other)
  Sender: FDA-Public Use
  Company Number: ES-MYLANLABS-2010S1006589

PATIENT
  Age: 6 Decade
  Sex: Male

DRUGS (9)
  1. PHENYTOIN [Suspect]
     Indication: STATUS EPILEPTICUS
     Dosage: 1G IN 30 MINUTES
     Route: 042
  2. PHENYTOIN [Suspect]
     Dosage: 100 MG/8 HOURS
     Route: 042
  3. PHENYTOIN [Suspect]
     Dosage: 100 MG/8 HOURS P.O.
     Route: 048
  4. PHENYTOIN [Suspect]
     Dosage: 400 MG/DAY IN 3 DOSES
     Route: 065
  5. TEMOZOLOMIDE [Interacting]
     Indication: GLIOBLASTOMA MULTIFORME
     Route: 065
  6. CISPLATIN [Interacting]
     Indication: GLIOBLASTOMA MULTIFORME
     Route: 065
     Dates: start: 20061101
  7. CARMUSTINE [Interacting]
     Indication: GLIOBLASTOMA MULTIFORME
     Route: 065
     Dates: start: 20061101
  8. DEXAMETHASONE [Interacting]
     Indication: GLIOBLASTOMA MULTIFORME
     Dosage: 2 MG/12 HOURS
     Route: 065
     Dates: start: 20061101
  9. DEXAMETHASONE [Interacting]
     Dosage: 4 MG/6 HOURS
     Route: 065
     Dates: start: 20061101

REACTIONS (1)
  - OPHTHALMOPLEGIA [None]
